FAERS Safety Report 24252080 (Version 1)
Quarter: 2024Q3

REPORT INFORMATION
  Report Type: Spontaneous
  Country: US (occurrence: US)
  Receive Date: 20240827
  Receipt Date: 20240827
  Transmission Date: 20241017
  Serious: No
  Sender: CHATTEM
  Company Number: US-OPELLA-2024OHG027111

PATIENT

DRUGS (1)
  1. SELENIUM SULFIDE [Suspect]
     Active Substance: SELENIUM SULFIDE
     Indication: Hair injury
     Route: 061

REACTIONS (1)
  - Skin burning sensation [Unknown]
